FAERS Safety Report 6288848-2 (Version None)
Quarter: 2009Q3

REPORT INFORMATION
  Report Type: 
  Country: None (occurrence: None)
  Receive Date: 20090729
  Receipt Date: 20090717
  Transmission Date: 20100115
  Serious: Yes (Other)
  Sender: FDA-Public Use
  Company Number: US-PFIZER INC-2009243370

PATIENT
  Sex: Female

DRUGS (1)
  1. CEREBYX [Suspect]
     Indication: CONVULSION
     Dosage: UNK
     Dates: start: 20090714

REACTIONS (2)
  - ABASIA [None]
  - MUSCULAR WEAKNESS [None]
